FAERS Safety Report 5364393-3 (Version None)
Quarter: 2007Q2

REPORT INFORMATION
  Report Type: 
  Country: None (occurrence: None)
  Receive Date: 20070620
  Receipt Date: 20070612
  Transmission Date: 20071010
  Serious: Yes (Disabling, Other)
  Sender: FDA-Public Use
  Company Number: PHEH2007US05894

PATIENT
  Age: 61 Year
  Sex: Female
  Weight: 90.249 kg

DRUGS (5)
  1. FEMARA [Suspect]
     Indication: BREAST CANCER
     Dosage: 2.5 MG, QD
     Dates: start: 20050101
  2. VITAMIN CAP [Concomitant]
     Dosage: 1 DAILY
  3. GLUCOSAMINE [Concomitant]
     Dosage: 400/500 DAILY
  4. VITAMIN B COMPLEX CAP [Concomitant]
     Dosage: 1 DAILY
  5. ASPIRIN [Concomitant]
     Dosage: 1 DAILY

REACTIONS (15)
  - ARTHRALGIA [None]
  - CARDIAC FLUTTER [None]
  - DIASTOLIC DYSFUNCTION [None]
  - ELECTROCARDIOGRAM AMBULATORY [None]
  - GAIT DISTURBANCE [None]
  - HEART RATE IRREGULAR [None]
  - JOINT INJURY [None]
  - OSTEOARTHRITIS [None]
  - PAIN IN EXTREMITY [None]
  - PALPITATIONS [None]
  - PULMONARY VALVE INCOMPETENCE [None]
  - SLUGGISHNESS [None]
  - SUPRAVENTRICULAR EXTRASYSTOLES [None]
  - TENDON INJURY [None]
  - TRICUSPID VALVE INCOMPETENCE [None]
